FAERS Safety Report 14690847 (Version 1)
Quarter: 2018Q1

REPORT INFORMATION
  Report Type: Spontaneous
  Country: GB (occurrence: GB)
  Receive Date: 20180328
  Receipt Date: 20180328
  Transmission Date: 20180509
  Serious: Yes (Other)
  Sender: FDA-Public Use
  Company Number: GB-TAKEDA-2018TUS007722

PATIENT
  Age: 70 Year
  Sex: Female

DRUGS (2)
  1. ADENURIC [Suspect]
     Active Substance: FEBUXOSTAT
     Dosage: 80 MG, QD
     Route: 065
  2. ADENURIC [Suspect]
     Active Substance: FEBUXOSTAT
     Indication: GOUT
     Dosage: 40 MG, QD
     Route: 065

REACTIONS (6)
  - Transient ischaemic attack [Unknown]
  - Peripheral swelling [Unknown]
  - Pain in extremity [Unknown]
  - Product use issue [Unknown]
  - Blood uric acid abnormal [Unknown]
  - Wrong technique in product usage process [Unknown]
